FAERS Safety Report 15843915 (Version 1)
Quarter: 2019Q1

REPORT INFORMATION
  Report Type: Spontaneous
  Country: US (occurrence: US)
  Receive Date: 20190118
  Receipt Date: 20190118
  Transmission Date: 20190417
  Serious: Yes (Death)
  Sender: FDA-Public Use
  Company Number: None

PATIENT
  Age: 73 Year
  Sex: Female
  Weight: 64.7 kg

DRUGS (1)
  1. SIROLIMUS. [Suspect]
     Active Substance: SIROLIMUS
     Indication: LIVER TRANSPLANT
     Route: 048

REACTIONS (5)
  - Hepatic cirrhosis [None]
  - Pulmonary oedema [None]
  - Cough [None]
  - Hepatitis C [None]
  - Traumatic lung injury [None]

NARRATIVE: CASE EVENT DATE: 20190115
